FAERS Safety Report 5412710-8 (Version None)
Quarter: 2007Q3

REPORT INFORMATION
  Report Type: 
  Country: None (occurrence: None)
  Receive Date: 20070809
  Receipt Date: 20070803
  Transmission Date: 20080115
  Serious: Yes (Life-Threatening, Hospitalization, Disabling)
  Sender: FDA-Public Use
  Company Number: 2007-162429-NL

PATIENT
  Age: 31 Year
  Sex: Male

DRUGS (3)
  1. MIRTAZAPINE [Suspect]
     Dosage: 30 MG/15MG/30MG/15MG/30MG
     Dates: end: 20061201
  2. MIRTAZAPINE [Suspect]
     Dosage: 30 MG/15MG/30MG/15MG/30MG
     Dates: start: 20050101
  3. ALCOHOL [Suspect]
     Dosage: DF ORAL
     Route: 048

REACTIONS (11)
  - AGGRESSION [None]
  - AGITATION [None]
  - ALCOHOLISM [None]
  - FACIAL BONES FRACTURE [None]
  - FALL [None]
  - HEAD INJURY [None]
  - PARANOIA [None]
  - PSYCHOTIC DISORDER [None]
  - ROAD TRAFFIC ACCIDENT [None]
  - SKULL FRACTURE [None]
  - SUICIDE ATTEMPT [None]
